FAERS Safety Report 16018102 (Version 1)
Quarter: 2019Q1

REPORT INFORMATION
  Report Type: Spontaneous
  Country: IN (occurrence: IN)
  Receive Date: 20190228
  Receipt Date: 20190228
  Transmission Date: 20190418
  Serious: Yes (Other)
  Sender: FDA-Public Use
  Company Number: IN-RICON PHARMA, LLC-RIC201902-000130

PATIENT
  Sex: Female

DRUGS (4)
  1. LIDOCAINE. [Suspect]
     Active Substance: LIDOCAINE
     Indication: FOETAL EXPOSURE TIMING UNSPECIFIED
  2. FENTANYL. [Concomitant]
     Active Substance: FENTANYL
     Indication: FOETAL EXPOSURE TIMING UNSPECIFIED
  3. ADRENALINE [Concomitant]
     Active Substance: EPINEPHRINE
     Indication: FOETAL EXPOSURE TIMING UNSPECIFIED
  4. ISOBARIC BUPIVACAINE [Suspect]
     Active Substance: BUPIVACAINE
     Indication: FOETAL EXPOSURE TIMING UNSPECIFIED

REACTIONS (2)
  - Foetal exposure during pregnancy [Unknown]
  - Foetal heart rate deceleration abnormality [Unknown]
